FAERS Safety Report 7644074-3 (Version None)
Quarter: 2011Q3

REPORT INFORMATION
  Report Type: 
  Country: None (occurrence: None)
  Receive Date: 20110729
  Receipt Date: 20110720
  Transmission Date: 20111222
  Serious: Yes (Hospitalization)
  Sender: FDA-Public Use
  Company Number: IT-JNJFOC-20110708995

PATIENT
  Sex: Male

DRUGS (2)
  1. ABIRATERONE ACETATE [Suspect]
     Indication: PROSTATE CANCER METASTATIC
     Route: 048
     Dates: start: 20110617, end: 20110719
  2. ABIRATERONE ACETATE [Suspect]
     Route: 048

REACTIONS (3)
  - PYREXIA [None]
  - PAIN [None]
  - ANAEMIA [None]
